FAERS Safety Report 8771514 (Version 1)
Quarter: 2012Q4

REPORT INFORMATION
  Report Type: 
  Country: GB (occurrence: GB)
  Receive Date: 20120905
  Receipt Date: 20120905
  Transmission Date: 20130627
  Serious: Yes (Other)
  Sender: FDA-Public Use
  Company Number: GB-ARROW-2012-15055

PATIENT
  Age: 52 Year
  Sex: Female

DRUGS (1)
  1. CABERGOLINE (UNKNOWN) [Suspect]
     Indication: PITUITARY TUMOUR
     Dosage: UNK
     Route: 065

REACTIONS (1)
  - Pituitary haemorrhage [Recovered/Resolved]
